FAERS Safety Report 8820941 (Version 2)
Quarter: 2012Q4

REPORT INFORMATION
  Report Type: Report from Study
  Country: UY (occurrence: UY)
  Receive Date: 20121002
  Receipt Date: 20121011
  Transmission Date: 20130627
  Serious: Yes (Other)
  Sender: FDA-Public Use
  Company Number: UY-BAYER-2012-099805

PATIENT
  Age: 49 Year
  Sex: Female

DRUGS (5)
  1. SORAFENIB (RAF KINASE INHIBITOR) [Suspect]
     Indication: RENAL CANCER
     Dosage: 800 mg, QOD
     Route: 048
     Dates: start: 201203
  2. REGULARPRES [Concomitant]
     Dosage: 2pills/day
  3. BEPANTHENE [Concomitant]
  4. EMOLLIENTS AND PROTECTIVES [Concomitant]
  5. ALOE VERA [Concomitant]

REACTIONS (8)
  - Hypertension [Not Recovered/Not Resolved]
  - Tachycardia [None]
  - Gingivitis [None]
  - Gingival bleeding [None]
  - Alopecia [None]
  - Rash papular [None]
  - Rash pustular [None]
  - Nodule [None]
